FAERS Safety Report 8555447-9 (Version None)
Quarter: 2012Q3

REPORT INFORMATION
  Report Type: 
  Country: None (occurrence: None)
  Receive Date: 20120731
  Receipt Date: 20110825
  Transmission Date: 20120928
  Serious: Yes (Other)
  Sender: FDA-Public Use
  Company Number: US-ASTRAZENECA-2011SE12480

PATIENT
  Sex: Male

DRUGS (8)
  1. HYDROCODONE-ACETOAMINOP [Concomitant]
     Dates: start: 20100415
  2. ZOLPIDEM TARTRATE [Concomitant]
     Dates: start: 20100420
  3. CEPHALEXIN [Concomitant]
     Dates: start: 20100430
  4. SEROQUEL [Suspect]
     Route: 048
     Dates: start: 20100420
  5. TRAMADOL HCL [Concomitant]
     Route: 065
     Dates: start: 20100430
  6. CYPROHEPTADINE HCL [Concomitant]
     Dates: start: 20100420
  7. CYMBALTA [Concomitant]
     Route: 065
     Dates: start: 20100420
  8. METHADONE HCL [Concomitant]
     Dates: start: 20100415

REACTIONS (3)
  - TYPE 2 DIABETES MELLITUS [None]
  - PANCREATITIS [None]
  - DIABETIC COMA [None]
